FAERS Safety Report 8369452-9 (Version None)
Quarter: 2012Q2

REPORT INFORMATION
  Report Type: 
  Country: None (occurrence: None)
  Receive Date: 20120517
  Receipt Date: 20120517
  Transmission Date: 20120825
  Serious: Yes (Other)
  Sender: FDA-Public Use
  Company Number: None

PATIENT
  Sex: Female
  Weight: 71.6683 kg

DRUGS (2)
  1. LEVOFLOXACIN [Suspect]
     Indication: COUGH
     Dosage: 750 MG 1 PER DAY FOR 10 DAYS
     Dates: start: 20120309, end: 20120318
  2. LEVOFLOXACIN [Suspect]
     Indication: PULMONARY CONGESTION
     Dosage: 750 MG 1 PER DAY FOR 10 DAYS
     Dates: start: 20120309, end: 20120318

REACTIONS (3)
  - GAIT DISTURBANCE [None]
  - ARTHRALGIA [None]
  - HYPOAESTHESIA [None]
